FAERS Safety Report 16395781 (Version 1)
Quarter: 2019Q2

REPORT INFORMATION
  Report Type: Spontaneous
  Country: GB (occurrence: GB)
  Receive Date: 20190605
  Receipt Date: 20190605
  Transmission Date: 20190711
  Serious: Yes (Hospitalization, Other)
  Sender: FDA-Public Use
  Company Number: GB-MYLANLABS-2019M1052715

PATIENT
  Age: 15 Year
  Sex: Male

DRUGS (4)
  1. PYRAZINAMIDE. [Concomitant]
     Active Substance: PYRAZINAMIDE
     Indication: PULMONARY TUBERCULOSIS
     Route: 065
  2. ETHAMBUTOL [Concomitant]
     Active Substance: ETHAMBUTOL HYDROCHLORIDE
     Indication: PULMONARY TUBERCULOSIS
     Route: 065
  3. ISONIAZID. [Concomitant]
     Active Substance: ISONIAZID
     Indication: PULMONARY TUBERCULOSIS
     Route: 065
  4. RIFAMPICIN [Suspect]
     Active Substance: RIFAMPIN
     Indication: PULMONARY TUBERCULOSIS
     Route: 065

REACTIONS (9)
  - Hyperbilirubinaemia [Unknown]
  - Leukoerythroblastic anaemia [Unknown]
  - Jaundice acholuric [Unknown]
  - Polychromasia [Unknown]
  - Chromaturia [Unknown]
  - Tachycardia [Unknown]
  - Acute kidney injury [Unknown]
  - Intravascular haemolysis [Unknown]
  - Tachypnoea [Unknown]
